FAERS Safety Report 12120153 (Version 3)
Quarter: 2016Q2

REPORT INFORMATION
  Report Type: Spontaneous
  Country: US (occurrence: US)
  Receive Date: 20160226
  Receipt Date: 20160505
  Transmission Date: 20160815
  Serious: No
  Sender: FDA-Public Use
  Company Number: US-PFIZER INC-2016092438

PATIENT
  Age: 53 Year
  Sex: Male
  Weight: 73 kg

DRUGS (6)
  1. LEVOXYL [Suspect]
     Active Substance: LEVOTHYROXINE SODIUM
     Dosage: 25 UG, UNK
     Dates: start: 2016, end: 201603
  2. LEVOXYL [Suspect]
     Active Substance: LEVOTHYROXINE SODIUM
     Indication: HYPOTHYROIDISM
     Dosage: 50 MCG, 1X/DAY
     Route: 048
     Dates: start: 2009
  3. LEVOXYL [Suspect]
     Active Substance: LEVOTHYROXINE SODIUM
     Dosage: 50 MCG, 1X/DAY
     Route: 048
     Dates: start: 201410
  4. PAXIL [Suspect]
     Active Substance: PAROXETINE HYDROCHLORIDE
     Dosage: 20 MG, 1X/DAY
  5. LEVOXYL [Suspect]
     Active Substance: LEVOTHYROXINE SODIUM
     Dosage: 12.5 MG, UNK
  6. KLONOPIN [Suspect]
     Active Substance: CLONAZEPAM
     Dosage: 1 MG, 2X/DAY (1 MG IN MORNING AND 1 MG IN EVENING)

REACTIONS (6)
  - Fatigue [Recovering/Resolving]
  - Muscular weakness [Recovering/Resolving]
  - Irritability [Recovering/Resolving]
  - Heart rate decreased [Unknown]
  - Insomnia [Recovering/Resolving]
  - Decreased appetite [Recovering/Resolving]
